FAERS Safety Report 7465569-1 (Version None)
Quarter: 2011Q2

REPORT INFORMATION
  Report Type: 
  Country: None (occurrence: None)
  Receive Date: 20110509
  Receipt Date: 20110504
  Transmission Date: 20111010
  Serious: Yes (Hospitalization)
  Sender: FDA-Public Use
  Company Number: PE-ROCHE-775333

PATIENT
  Sex: Female
  Weight: 78 kg

DRUGS (1)
  1. ISOTRETINOIN [Suspect]
     Indication: ACNE
     Dosage: FREQUENCY: DAILY.
     Route: 048
     Dates: start: 20101028, end: 20101115

REACTIONS (1)
  - VOMITING [None]
